FAERS Safety Report 5183311-4 (Version None)
Quarter: 2006Q4

REPORT INFORMATION
  Report Type: 
  Country: None (occurrence: None)
  Receive Date: 20061220
  Receipt Date: 20060106
  Transmission Date: 20070319
  Serious: No
  Sender: FDA-Public Use
  Company Number: US-GLAXOSMITHKLINE-A0588111A

PATIENT
  Age: 58 Year
  Sex: Female

DRUGS (6)
  1. NICODERM CQ [Suspect]
     Dates: start: 20060103
  2. AVANDIA [Concomitant]
  3. LISINOPRIL [Concomitant]
  4. ASPIRIN [Concomitant]
  5. METFORMIN [Concomitant]
  6. INSULIN [Concomitant]

REACTIONS (1)
  - COUGH [None]
